FAERS Safety Report 14854195 (Version 1)
Quarter: 2018Q2

REPORT INFORMATION
  Report Type: Spontaneous
  Country: US (occurrence: US)
  Receive Date: 20180420
  Receipt Date: 20180420
  Transmission Date: 20180711
  Serious: Yes (Other)
  Sender: FDA-Public Use
  Company Number: None

PATIENT
  Age: 48 Year
  Sex: Female
  Weight: 94.05 kg

DRUGS (18)
  1. BASAGLAR [Concomitant]
     Active Substance: INSULIN GLARGINE
  2. VITAMIN D3 [Concomitant]
     Active Substance: CHOLECALCIFEROL
  3. CYMBALTA [Concomitant]
     Active Substance: DULOXETINE HYDROCHLORIDE
  4. METFORMIN [Concomitant]
     Active Substance: METFORMIN HYDROCHLORIDE
  5. DIOVAN [Concomitant]
     Active Substance: VALSARTAN
  6. LITHIUM CARB [Concomitant]
     Active Substance: LITHIUM CARBONATE
  7. WELLBUTRIN [Concomitant]
     Active Substance: BUPROPION HYDROCHLORIDE
  8. LISINOPRIL. [Concomitant]
     Active Substance: LISINOPRIL
  9. NOVOLOG [Concomitant]
     Active Substance: INSULIN ASPART
  10. LINZESS [Concomitant]
     Active Substance: LINACLOTIDE
  11. ESTRADIOL TRANSDERMAL SYSTEM [Concomitant]
     Active Substance: ESTRADIOL
  12. TROKENDI XR [Suspect]
     Active Substance: TOPIRAMATE
     Indication: MIGRAINE
     Dosage: ?          QUANTITY:1 CAPSULE(S);?
     Route: 048
     Dates: start: 20180412, end: 20180418
  13. VICTOZA [Concomitant]
     Active Substance: LIRAGLUTIDE
  14. MULTI VITAMIN [Concomitant]
     Active Substance: VITAMINS
  15. SYMTHROID [Concomitant]
  16. VITAMIN B12 [Concomitant]
     Active Substance: CYANOCOBALAMIN
  17. OMEPRAZOLE. [Concomitant]
     Active Substance: OMEPRAZOLE
  18. LIDOCAINE PATCH [Concomitant]
     Active Substance: LIDOCAINE

REACTIONS (2)
  - Tremor [None]
  - Dysphemia [None]

NARRATIVE: CASE EVENT DATE: 20180414
